FAERS Safety Report 13767259 (Version 2)
Quarter: 2017Q4

REPORT INFORMATION
  Report Type: Spontaneous
  Country: BR (occurrence: BR)
  Receive Date: 20170719
  Receipt Date: 20171024
  Transmission Date: 20180320
  Serious: Yes (Other)
  Sender: FDA-Public Use
  Company Number: BR-ABBVIE-17P-020-2043862-00

PATIENT
  Sex: Female
  Weight: 78 kg

DRUGS (9)
  1. LOSARTAN. [Concomitant]
     Active Substance: LOSARTAN
     Indication: HYPERTENSION
     Route: 048
  2. DEPAKOTE ER [Suspect]
     Active Substance: DIVALPROEX SODIUM
     Indication: ANXIETY
     Route: 048
     Dates: start: 2010
  3. ATENOLOL. [Concomitant]
     Active Substance: ATENOLOL
     Indication: HYPERTENSION
     Route: 048
  4. ATORVASTATIN CALCIUM. [Concomitant]
     Active Substance: ATORVASTATIN CALCIUM
     Indication: BLOOD CHOLESTEROL
     Route: 048
  5. AMLODIPINE BESYLATE. [Concomitant]
     Active Substance: AMLODIPINE BESYLATE
     Indication: HYPERTENSION
     Route: 048
  6. METFORMIN [Concomitant]
     Active Substance: METFORMIN HYDROCHLORIDE
     Indication: DIABETES MELLITUS
     Route: 048
  7. SUSTRATE [Concomitant]
     Active Substance: PROPATYL NITRATE
     Indication: TACHYCARDIA
     Route: 060
  8. DEPAKOTE [Suspect]
     Active Substance: DIVALPROEX SODIUM
     Indication: HEADACHE
     Route: 065
     Dates: start: 2010
  9. DEPAKOTE [Suspect]
     Active Substance: DIVALPROEX SODIUM
     Indication: PROPHYLAXIS

REACTIONS (2)
  - Vascular catheterisation [Unknown]
  - Weight increased [Not Recovered/Not Resolved]

NARRATIVE: CASE EVENT DATE: 2016
